FAERS Safety Report 4765408-3 (Version None)
Quarter: 2005Q3

REPORT INFORMATION
  Report Type: 
  Country: None (occurrence: None)
  Receive Date: 20050908
  Receipt Date: 20050908
  Transmission Date: 20060218
  Serious: Yes (Other)
  Sender: FDA-Public Use
  Company Number: None

PATIENT
  Sex: Female
  Weight: 69.8539 kg

DRUGS (3)
  1. DETROL LA [Suspect]
     Indication: POLLAKIURIA
     Dosage: ONE PO DAILY
     Route: 048
     Dates: start: 20050711, end: 20050822
  2. SINGULAIR [Concomitant]
  3. ALLEGRA [Concomitant]

REACTIONS (6)
  - BALANCE DISORDER [None]
  - DRUG WITHDRAWAL SYNDROME [None]
  - FATIGUE [None]
  - HEADACHE [None]
  - REBOUND EFFECT [None]
  - VERTIGO [None]
